FAERS Safety Report 19058264 (Version 12)
Quarter: 2023Q2

REPORT INFORMATION
  Report Type: Report from Study
  Country: NL (occurrence: NL)
  Receive Date: 20210324
  Receipt Date: 20230509
  Transmission Date: 20230721
  Serious: Yes (Other)
  Sender: FDA-Public Use
  Company Number: NL-ABBVIE-19K-114-2909986-00

PATIENT
  Sex: Male
  Weight: 100 kg

DRUGS (7)
  1. CARBIDOPA\LEVODOPA [Suspect]
     Active Substance: CARBIDOPA\LEVODOPA
     Indication: Parkinson^s disease
     Dosage: MD: 10.0 ML, CD: 2.3 ML/H, ED: 3.0 ML; REMAINS AT 16 HOURS
     Route: 050
     Dates: start: 20160517
  2. CARBIDOPA\LEVODOPA [Suspect]
     Active Substance: CARBIDOPA\LEVODOPA
     Dosage: MD: 10.0 ML, CD: 2.5 ML/H, ED: 3.0 ML; REMAINS AT 16 HOURS
     Route: 050
  3. CARBIDOPA\LEVODOPA [Suspect]
     Active Substance: CARBIDOPA\LEVODOPA
     Dosage: MD: 10.0 ML, CD: 2.5  ML/H, ED: 3.0 ML REMAINS AT 16 HOURS
     Route: 050
  4. CARBIDOPA\LEVODOPA [Suspect]
     Active Substance: CARBIDOPA\LEVODOPA
     Dosage: MD: 10.0ML, CD: 2.5ML/H, ED: 3.0ML;
     Route: 050
  5. CARBIDOPA\LEVODOPA [Suspect]
     Active Substance: CARBIDOPA\LEVODOPA
     Dosage: MD: 10.0ML, CD: 2.9ML/H, ED: 3.0ML
     Route: 050
  6. RIVASTIGMINE [Concomitant]
     Active Substance: RIVASTIGMINE
     Indication: Product used for unknown indication
     Dosage: PLASTER
  7. NEUPRO [Concomitant]
     Active Substance: ROTIGOTINE
     Indication: Product used for unknown indication
     Route: 003

REACTIONS (34)
  - Embedded device [Recovered/Resolved]
  - Weight abnormal [Not Recovered/Not Resolved]
  - Device issue [Recovered/Resolved]
  - Hyperaesthesia [Recovered/Resolved]
  - Memory impairment [Not Recovered/Not Resolved]
  - Cognitive disorder [Not Recovered/Not Resolved]
  - Speech disorder [Not Recovered/Not Resolved]
  - Dry eye [Not Recovered/Not Resolved]
  - Fibroma [Not Recovered/Not Resolved]
  - Communication disorder [Not Recovered/Not Resolved]
  - Device fastener issue [Recovered/Resolved]
  - Aphasia [Not Recovered/Not Resolved]
  - Insomnia [Not Recovered/Not Resolved]
  - Nocturia [Not Recovered/Not Resolved]
  - Anosognosia [Not Recovered/Not Resolved]
  - Haematochezia [Not Recovered/Not Resolved]
  - Sexually inappropriate behaviour [Not Recovered/Not Resolved]
  - Device deployment issue [Recovered/Resolved]
  - Muscle rigidity [Not Recovered/Not Resolved]
  - Dyschezia [Not Recovered/Not Resolved]
  - Dyscalculia [Not Recovered/Not Resolved]
  - Gait disturbance [Not Recovered/Not Resolved]
  - Gait disturbance [Not Recovered/Not Resolved]
  - Abnormal dreams [Not Recovered/Not Resolved]
  - Therapeutic product effect incomplete [Recovered/Resolved]
  - Hallucination [Not Recovered/Not Resolved]
  - Dyskinesia [Recovered/Resolved]
  - Tremor [Not Recovered/Not Resolved]
  - Stoma site discharge [Not Recovered/Not Resolved]
  - On and off phenomenon [Not Recovered/Not Resolved]
  - Stoma site discharge [Recovered/Resolved]
  - Parkinson^s disease [Recovering/Resolving]
  - Hallucination, visual [Unknown]
  - Abnormal dreams [Not Recovered/Not Resolved]

NARRATIVE: CASE EVENT DATE: 20230101
